FAERS Safety Report 7780247-7 (Version None)
Quarter: 2011Q3

REPORT INFORMATION
  Report Type: 
  Country: None (occurrence: None)
  Receive Date: 20110927
  Receipt Date: 20110615
  Transmission Date: 20111222
  Serious: No
  Sender: FDA-Public Use
  Company Number: US-ASTRAZENECA-2011SE36486

PATIENT
  Age: 69 Year
  Sex: Female
  Weight: 68 kg

DRUGS (5)
  1. ATENOLOL [Concomitant]
     Indication: HYPERTENSION
  2. GLUCOSAMINE [Concomitant]
  3. AMLODIPINE [Concomitant]
     Indication: BLOOD PRESSURE
  4. SEROQUEL [Suspect]
     Route: 048
  5. VITAMIN TAB [Concomitant]

REACTIONS (1)
  - BLISTER [None]
